FAERS Safety Report 10167986 (Version 2)
Quarter: 2014Q2

REPORT INFORMATION
  Report Type: Report from Study
  Country: KR (occurrence: KR)
  Receive Date: 20140512
  Receipt Date: 20140515
  Transmission Date: 20141212
  Serious: Yes (Hospitalization)
  Sender: FDA-Public Use
  Company Number: KR-GLAXOSMITHKLINE-B0991685A

PATIENT
  Age: 58 Year
  Sex: Male
  Weight: 69.3 kg

DRUGS (5)
  1. PAZOPANIB [Suspect]
     Indication: RENAL CELL CARCINOMA
     Route: 048
     Dates: start: 20140405
  2. BARACLUDE [Concomitant]
     Indication: HEPATITIS B
     Route: 048
  3. NEURONTIN [Concomitant]
     Indication: NEURALGIA
     Dosage: 100MG PER DAY
     Route: 048
     Dates: start: 20140209
  4. OXYCODONE HYDROCHLORIDE [Concomitant]
     Indication: CANCER PAIN
     Dosage: 5MG PER DAY
     Route: 048
     Dates: start: 20140208
  5. DUROGESIC PATCH [Concomitant]
     Indication: CANCER PAIN
     Dates: start: 20140208

REACTIONS (3)
  - Decreased appetite [Recovered/Resolved]
  - Depression [Recovered/Resolved]
  - Asthenia [Recovered/Resolved]
